FAERS Safety Report 22259334 (Version 2)
Quarter: 2023Q2

REPORT INFORMATION
  Report Type: Spontaneous
  Country: CA (occurrence: CA)
  Receive Date: 20230427
  Receipt Date: 20230505
  Transmission Date: 20230722
  Serious: Yes (Hospitalization, Other)
  Sender: FDA-Public Use
  Company Number: CA-ELI_LILLY_AND_COMPANY-CA202304011050

PATIENT
  Age: 41 Year
  Sex: Female

DRUGS (9)
  1. CYMBALTA [Interacting]
     Active Substance: DULOXETINE HYDROCHLORIDE
     Indication: Insomnia
     Dosage: 60 MG, UNKNOWN
     Route: 065
  2. CYMBALTA [Interacting]
     Active Substance: DULOXETINE HYDROCHLORIDE
     Dosage: 30 MG, UNKNOWN
     Route: 065
  3. CYMBALTA [Interacting]
     Active Substance: DULOXETINE HYDROCHLORIDE
     Dosage: 90 MG, UNKNOWN
     Route: 065
  4. ABILIFY MAINTENA [Interacting]
     Active Substance: ARIPIPRAZOLE
     Indication: Product used for unknown indication
     Dosage: 5 MG, UNKNOWN
     Route: 030
  5. ABILIFY MAINTENA [Interacting]
     Active Substance: ARIPIPRAZOLE
     Indication: Product used for unknown indication
     Dosage: 2 G, UNKNOWN
     Route: 030
  6. ABILIFY MAINTENA [Interacting]
     Active Substance: ARIPIPRAZOLE
     Dosage: 1 MG, UNKNOWN
     Route: 030
  7. CLONAZEPAM [Interacting]
     Active Substance: CLONAZEPAM
     Indication: Insomnia
     Dosage: UNK UNK, UNKNOWN
     Route: 048
  8. QUETIAPINE FUMARATE [Interacting]
     Active Substance: QUETIAPINE FUMARATE
     Indication: Insomnia
     Dosage: 25 MG, DAILY
     Route: 048
  9. QUETIAPINE FUMARATE [Interacting]
     Active Substance: QUETIAPINE FUMARATE
     Dosage: 25 MG, DAILY
     Route: 048

REACTIONS (7)
  - Abnormal behaviour [Unknown]
  - Mood altered [Unknown]
  - Stubbornness [Unknown]
  - Thinking abnormal [Unknown]
  - Drug interaction [Unknown]
  - Product use in unapproved indication [Unknown]
  - Product use issue [Unknown]
